FAERS Safety Report 18240363 (Version 2)
Quarter: 2020Q3

REPORT INFORMATION
  Report Type: Spontaneous
  Country: JP (occurrence: JP)
  Receive Date: 20200908
  Receipt Date: 20200916
  Transmission Date: 20201103
  Serious: Yes (Hospitalization, Other)
  Sender: FDA-Public Use
  Company Number: JP-TEVA-2020-JP-1824691

PATIENT
  Age: 8 Decade
  Sex: Male

DRUGS (5)
  1. SUNITINIB [Suspect]
     Active Substance: SUNITINIB
     Dosage: 25 MILLIGRAM DAILY;
     Route: 065
  2. REGORAFENIB. [Suspect]
     Active Substance: REGORAFENIB
     Indication: GASTROINTESTINAL STROMAL TUMOUR
     Dosage: 120 MILLIGRAM DAILY;
     Route: 065
  3. REGORAFENIB. [Suspect]
     Active Substance: REGORAFENIB
     Dosage: 80 MILLIGRAM DAILY;
     Route: 065
  4. IMATINIB. [Suspect]
     Active Substance: IMATINIB MESYLATE
     Indication: GASTROINTESTINAL STROMAL TUMOUR
     Dosage: 400 MILLIGRAM DAILY;
     Route: 065
  5. SUNITINIB [Suspect]
     Active Substance: SUNITINIB
     Indication: GASTROINTESTINAL STROMAL TUMOUR
     Dosage: 50 MILLIGRAM DAILY;
     Route: 065

REACTIONS (4)
  - Interstitial lung disease [Recovering/Resolving]
  - Proteinuria [Unknown]
  - Nephropathy toxic [Unknown]
  - Blood creatinine increased [Unknown]
